FAERS Safety Report 5892195-8 (Version None)
Quarter: 2008Q3

REPORT INFORMATION
  Report Type: 
  Country: None (occurrence: None)
  Receive Date: 20080922
  Receipt Date: 20080910
  Transmission Date: 20090109
  Serious: Yes (Hospitalization, Other)
  Sender: FDA-Public Use
  Company Number: FR-VALEANT-2008VX001823

PATIENT
  Age: 61 Year
  Sex: Female

DRUGS (4)
  1. LIBRIUM [Suspect]
     Indication: DRUG USE FOR UNKNOWN INDICATION
     Dosage: DOSE UNIT:UNKNOWN
     Route: 048
     Dates: start: 20080608, end: 20080701
  2. SEROPLEX [Suspect]
     Dosage: DOSE UNIT:UNKNOWN
     Route: 048
     Dates: start: 20080608, end: 20080701
  3. PYRIDOXINE HYDROCHLORIDE [Suspect]
     Dosage: DOSE UNIT:UNKNOWN
     Route: 048
     Dates: start: 20080401, end: 20080511
  4. PYRIDOXINE HYDROCHLORIDE [Suspect]
     Dosage: DOSE UNIT:UNKNOWN
     Route: 048
     Dates: start: 20080512, end: 20080610

REACTIONS (1)
  - HYPOMANIA [None]
